FAERS Safety Report 5331110-2 (Version None)
Quarter: 2007Q2

REPORT INFORMATION
  Report Type: 
  Country: None (occurrence: None)
  Receive Date: 20070518
  Receipt Date: 20070518
  Transmission Date: 20071010
  Serious: Yes (Disabling, Other)
  Sender: FDA-Public Use
  Company Number: None

PATIENT
  Age: 57 Year
  Sex: Male
  Weight: 90.7194 kg

DRUGS (1)
  1. TOPAMAX [Suspect]
     Indication: MIGRAINE
     Dosage: 250MG B.I.D. PO
     Route: 048
     Dates: start: 20000530, end: 20070210

REACTIONS (22)
  - ABASIA [None]
  - ACTIVITIES OF DAILY LIVING IMPAIRED [None]
  - BEDRIDDEN [None]
  - BLOOD HOMOCYSTEINE INCREASED [None]
  - DIARRHOEA [None]
  - DISTURBANCE IN ATTENTION [None]
  - DIZZINESS [None]
  - DYSARTHRIA [None]
  - DYSGRAPHIA [None]
  - ERYTHEMA [None]
  - GAIT DISTURBANCE [None]
  - HYPERHIDROSIS [None]
  - ILL-DEFINED DISORDER [None]
  - LOSS OF CONTROL OF LEGS [None]
  - MOTION SICKNESS [None]
  - NAUSEA [None]
  - NO THERAPEUTIC RESPONSE [None]
  - PARKINSONISM [None]
  - VOMITING [None]
  - WALKING AID USER [None]
  - WEIGHT DECREASED [None]
  - WHEELCHAIR USER [None]
